FAERS Safety Report 25712939 (Version 1)
Quarter: 2025Q3

REPORT INFORMATION
  Report Type: Spontaneous
  Country: US (occurrence: US)
  Receive Date: 20250821
  Receipt Date: 20250821
  Transmission Date: 20251021
  Serious: No
  Sender: ABBVIE
  Company Number: US-ABBVIE-6417969

PATIENT
  Age: 56 Year
  Sex: Male
  Weight: 97 kg

DRUGS (2)
  1. VYALEV [Suspect]
     Active Substance: FOSCARBIDOPA\FOSLEVODOPA
     Indication: Parkinson^s disease
     Route: 058
     Dates: start: 20250731, end: 20250806
  2. VYALEV [Suspect]
     Active Substance: FOSCARBIDOPA\FOSLEVODOPA
     Route: 058
     Dates: start: 20250721, end: 20250730

REACTIONS (3)
  - Catheter site vesicles [Recovering/Resolving]
  - On and off phenomenon [Recovering/Resolving]
  - Catheter site vesicles [Recovering/Resolving]

NARRATIVE: CASE EVENT DATE: 20250701
